FAERS Safety Report 9393821 (Version 4)
Quarter: 2013Q4

REPORT INFORMATION
  Report Type: Report from Study
  Country: NL (occurrence: NL)
  Receive Date: 20130710
  Receipt Date: 20131211
  Transmission Date: 20140711
  Serious: Yes (Hospitalization)
  Sender: FDA-Public Use
  Company Number: NL-JNJFOC-20130702380

PATIENT
  Age: 58 Year
  Sex: Male
  Weight: 103 kg

DRUGS (11)
  1. GOLIMUMAB [Suspect]
     Indication: ANKYLOSING SPONDYLITIS
     Dosage: AT 12:30 HOURS
     Route: 058
     Dates: start: 20130418
  2. GOLIMUMAB [Suspect]
     Indication: ANKYLOSING SPONDYLITIS
     Route: 058
     Dates: start: 20130516, end: 20130516
  3. HCTZ [Concomitant]
     Route: 048
  4. TAMSULOSIN [Concomitant]
     Route: 048
  5. ALL OTHER THERAPEUTIC PRODUCTS [Concomitant]
     Route: 048
  6. RASILEZ [Concomitant]
     Route: 048
  7. DICLOFENAC [Concomitant]
     Route: 048
  8. LEVOCETIRIZINE DIHYDROCHLORIDE [Concomitant]
     Route: 048
  9. ESOMEPRAZOL [Concomitant]
     Route: 048
  10. EYE DROPS [Concomitant]
     Dosage: 0.1%, BOTH EYES
     Route: 047
  11. DUOTRAV [Concomitant]
     Dosage: BOTH EYES
     Route: 047

REACTIONS (2)
  - Urinary tract infection [Recovered/Resolved]
  - Pneumonia [Recovered/Resolved]
